FAERS Safety Report 17349735 (Version 1)
Quarter: 2020Q1

REPORT INFORMATION
  Report Type: Spontaneous
  Country: DE (occurrence: DE)
  Receive Date: 20200130
  Receipt Date: 20200130
  Transmission Date: 20200409
  Serious: Yes (Other)
  Sender: FDA-Public Use
  Company Number: DE-PFIZER INC-2019490668

PATIENT
  Age: 84 Year
  Sex: Male

DRUGS (6)
  1. TELMISARTAN HEUMANN [Concomitant]
     Active Substance: TELMISARTAN
     Dosage: 40 MG, UNK
  2. INLYTA [Suspect]
     Active Substance: AXITINIB
     Indication: RENAL CANCER
     Dosage: 5 MG, TWICE A DAY
     Dates: start: 20190919
  3. LERCANIDIPIN OMNIAPHARM [Concomitant]
     Active Substance: LERCANIDIPINE HYDROCHLORIDE
     Dosage: 10 MG, UNK
  4. INLYTA [Suspect]
     Active Substance: AXITINIB
     Indication: RENAL CANCER METASTATIC
     Dosage: 3 MG, TWICE A DAY
  5. TORASEMID HEXAL [Concomitant]
     Active Substance: TORSEMIDE
     Dosage: UNK
  6. CARVEDILOL HEXAL [Concomitant]
     Active Substance: CARVEDILOL
     Dosage: 12.5 MG, UNK

REACTIONS (3)
  - Stomatitis [Recovered/Resolved]
  - Vocal cord disorder [Recovered/Resolved]
  - Dysphonia [Recovered/Resolved]

NARRATIVE: CASE EVENT DATE: 201910
